FAERS Safety Report 25166828 (Version 1)
Quarter: 2025Q2

REPORT INFORMATION
  Report Type: Spontaneous
  Country: FR (occurrence: FR)
  Receive Date: 20250407
  Receipt Date: 20250407
  Transmission Date: 20250717
  Serious: Yes (Other)
  Sender: ALEXION PHARMACEUTICALS
  Company Number: FR-ASTRAZENECA-202503GLO027793FR

PATIENT
  Age: 40 Year

DRUGS (1)
  1. ANIFROLUMAB [Suspect]
     Active Substance: ANIFROLUMAB
     Indication: Chronic cutaneous lupus erythematosus
     Route: 065

REACTIONS (1)
  - Cutaneous lupus erythematosus [Recovered/Resolved]
